FAERS Safety Report 9235443 (Version 2)
Quarter: 2013Q2

REPORT INFORMATION
  Report Type: Spontaneous
  Country: US (occurrence: US)
  Receive Date: 20130417
  Receipt Date: 20130515
  Transmission Date: 20140414
  Serious: Yes (Hospitalization, Other)
  Sender: FDA-Public Use
  Company Number: US-AMGEN-USASP2013025114

PATIENT
  Age: 72 Year
  Sex: Female
  Weight: 46.72 kg

DRUGS (4)
  1. PROLIA [Suspect]
     Indication: OSTEOPENIA
     Dosage: 60 MG, Q6MO
     Route: 058
     Dates: start: 20110505
  2. PROLIA [Suspect]
     Dosage: UNK
  3. PROLIA [Suspect]
     Dosage: UNK
  4. LEVOTHYROXINE [Concomitant]
     Indication: HYPOTHYROIDISM

REACTIONS (15)
  - Deafness [Recovered/Resolved]
  - Dry skin [Recovered/Resolved]
  - Skin discolouration [Recovered/Resolved]
  - Paraesthesia [Recovered/Resolved]
  - Rash [Recovered/Resolved]
  - Cerumen impaction [Unknown]
  - Skin irritation [Unknown]
  - Rash erythematous [Unknown]
  - Rash pruritic [Unknown]
  - Chills [Unknown]
  - Feeling cold [Unknown]
  - Ear pain [Unknown]
  - Balance disorder [Unknown]
  - Otorrhoea [Unknown]
  - Dizziness [Unknown]
